FAERS Safety Report 7717158-9 (Version None)
Quarter: 2011Q3

REPORT INFORMATION
  Report Type: 
  Country: None (occurrence: None)
  Receive Date: 20110826
  Receipt Date: 20110826
  Transmission Date: 20111222
  Serious: No
  Sender: FDA-Public Use
  Company Number: None

PATIENT
  Sex: Female

DRUGS (2)
  1. RIBAVIRIN [Suspect]
     Dosage: RIBAPAK 800 MG DAILY PO
     Route: 048
  2. PEGASYS [Suspect]
     Indication: HEPATITIS C
     Dosage: PEGASYS 50 MG WEEKLY SQ
     Route: 058
     Dates: start: 20110601

REACTIONS (2)
  - BLOOD COUNT ABNORMAL [None]
  - INFLUENZA LIKE ILLNESS [None]
